FAERS Safety Report 25150286 (Version 1)
Quarter: 2025Q2

REPORT INFORMATION
  Report Type: Spontaneous
  Country: US (occurrence: None)
  Receive Date: 20250401
  Receipt Date: 20250401
  Transmission Date: 20250716
  Serious: Yes (Hospitalization, Disabling)
  Sender: FDA-CTU
  Company Number: None

PATIENT
  Age: 64 Year
  Sex: Male
  Weight: 57.4 kg

DRUGS (7)
  1. EMICIZUMAB [Suspect]
     Active Substance: EMICIZUMAB
     Indication: Factor VIII deficiency
     Route: 058
     Dates: start: 20190307
  2. Emicizumab 60 mg [Concomitant]
     Dates: start: 20190307, end: 20221220
  3. Emicizumab 105 mg [Concomitant]
     Dates: start: 20221220, end: 20250303
  4. Emicizumab 90 mg [Concomitant]
     Dates: start: 20220303
  5. ASPIRIN [Concomitant]
     Active Substance: ASPIRIN
     Dates: start: 20200626
  6. CLOPIDOGREL [Concomitant]
     Active Substance: CLOPIDOGREL BISULFATE
     Dates: start: 20220710, end: 20241007
  7. CLOPIDOGREL [Concomitant]
     Active Substance: CLOPIDOGREL BISULFATE

REACTIONS (1)
  - Cerebral infarction [None]

NARRATIVE: CASE EVENT DATE: 20250228
